FAERS Safety Report 4326315-3 (Version None)
Quarter: 2004Q1

REPORT INFORMATION
  Report Type: 
  Country: None (occurrence: None)
  Receive Date: 20040325
  Receipt Date: 20031204
  Transmission Date: 20041129
  Serious: No
  Sender: FDA-Public Use
  Company Number: US059639

PATIENT
  Age: 50 Year
  Sex: Female

DRUGS (7)
  1. NEULASTA [Suspect]
     Indication: CHEMOTHERAPY
     Dosage: AFTER CHEMO
     Dates: start: 20030101
  2. NEUPOGEN [Suspect]
     Dosage: 480 MCG, AFTER CHEMO
     Dates: start: 20030101
  3. ... [Suspect]
     Dates: start: 20030101
  4. DOXORUBICIN HYDROCHLORIDE [Concomitant]
  5. BLEOMYCIN SULFATE [Concomitant]
  6. VINBLASTINE SULFATE [Concomitant]
  7. DACARBAZINE [Concomitant]

REACTIONS (5)
  - ARTHRALGIA [None]
  - BACK PAIN [None]
  - MUSCULOSKELETAL CHEST PAIN [None]
  - MUSCULOSKELETAL PAIN [None]
  - NECK PAIN [None]
